FAERS Safety Report 25996686 (Version 1)
Quarter: 2025Q4

REPORT INFORMATION
  Report Type: Other
  Country: US (occurrence: US)
  Receive Date: 20251104
  Receipt Date: 20251104
  Transmission Date: 20260118
  Serious: No
  Sender: SIGMA TAU
  Company Number: US-LEADIANT BIOSCIENCES, INC.-2024LBI000428

PATIENT
  Sex: Female

DRUGS (1)
  1. CYSTARAN [Suspect]
     Active Substance: CYSTEAMINE HYDROCHLORIDE
     Indication: Cystinosis
     Dosage: INSTILL 1 DROP INTO BOTH EYES 6 TIMES DAILY.
     Route: 047
     Dates: start: 20220415

REACTIONS (3)
  - Eyelids pruritus [Unknown]
  - Eye pruritus [Unknown]
  - Lacrimation increased [Unknown]
